FAERS Safety Report 6027460-7 (Version None)
Quarter: 2009Q1

REPORT INFORMATION
  Report Type: 
  Country: None (occurrence: None)
  Receive Date: 20090105
  Receipt Date: 20081223
  Transmission Date: 20090719
  Serious: Yes (Hospitalization)
  Sender: FDA-Public Use
  Company Number: US-SANOFI-SYNTHELABO-A03200805155

PATIENT
  Age: 59 Year
  Sex: Male

DRUGS (5)
  1. ELOXATIN [Suspect]
     Indication: COLORECTAL CANCER METASTATIC
     Route: 042
  2. LEUCOVORIN CALCIUM [Suspect]
     Indication: COLORECTAL CANCER METASTATIC
     Dosage: UNK
     Route: 065
  3. FLUOROURACIL [Suspect]
     Indication: COLORECTAL CANCER METASTATIC
     Dosage: UNK
     Route: 065
  4. CAPECITABINE [Suspect]
     Indication: COLORECTAL CANCER METASTATIC
     Dosage: 850 MG/M2 EVERY 12 HOURS
     Route: 065
  5. BEVACIZUMAB [Suspect]
     Indication: COLORECTAL CANCER METASTATIC
     Dosage: 5MG/KG EVERY 2 WEEKS
     Route: 065

REACTIONS (6)
  - CONDITION AGGRAVATED [None]
  - DISEASE PROGRESSION [None]
  - NEUROPATHY PERIPHERAL [None]
  - PALMAR-PLANTAR ERYTHRODYSAESTHESIA SYNDROME [None]
  - PORTAL HYPERTENSION [None]
  - THROMBOCYTOPENIA [None]
